FAERS Safety Report 5673567-3 (Version None)
Quarter: 2008Q1

REPORT INFORMATION
  Report Type: 
  Country: None (occurrence: None)
  Receive Date: 20080319
  Receipt Date: 20080318
  Transmission Date: 20080703
  Serious: Yes (Death)
  Sender: FDA-Public Use
  Company Number: US-ABBOTT-08P-163-0442847-00

PATIENT
  Sex: Male
  Weight: 68.1 kg

DRUGS (2)
  1. KALETRA [Suspect]
     Indication: HIV TEST POSITIVE
     Route: 048
     Dates: start: 19990101, end: 20070901
  2. KALETRA [Suspect]
     Dosage: ROUTE:  G-TUBE
     Dates: start: 20070901, end: 20080317

REACTIONS (1)
  - TONGUE NEOPLASM MALIGNANT STAGE UNSPECIFIED [None]
